FAERS Safety Report 24545315 (Version 1)
Quarter: 2024Q4

REPORT INFORMATION
  Report Type: Report from Study
  Country: US (occurrence: US)
  Receive Date: 20241024
  Receipt Date: 20241024
  Transmission Date: 20250115
  Serious: Yes (Other)
  Sender: PFIZER
  Company Number: US-PFIZER INC-202400284071

PATIENT
  Age: 57 Year
  Sex: Female

DRUGS (1)
  1. TUKYSA [Suspect]
     Active Substance: TUCATINIB
     Dosage: 300 MG, 2X/DAY
     Route: 048

REACTIONS (5)
  - Atypical pneumonia [Unknown]
  - Stomatitis [Unknown]
  - Blood urea increased [Unknown]
  - Headache [Unknown]
  - Fatigue [Unknown]
